FAERS Safety Report 5250416-9 (Version None)
Quarter: 2007Q1

REPORT INFORMATION
  Report Type: 
  Country: None (occurrence: None)
  Receive Date: 20070228
  Receipt Date: 20060411
  Transmission Date: 20070707
  Serious: No
  Sender: FDA-Public Use
  Company Number: US-GLAXOSMITHKLINE-A0601394A

PATIENT
  Age: 51 Year
  Sex: Female

DRUGS (7)
  1. LAMICTAL [Suspect]
     Dosage: 50MG PER DAY
     Route: 048
  2. PREMARIN [Concomitant]
  3. POTASSIUM ACETATE [Concomitant]
  4. CELEXA [Concomitant]
  5. TOPROL-XL [Concomitant]
  6. AMILORIDE HYDROCHLORIDE [Concomitant]
  7. MAGNESIUM [Concomitant]

REACTIONS (2)
  - BLOOD MAGNESIUM DECREASED [None]
  - BLOOD POTASSIUM DECREASED [None]
